FAERS Safety Report 6014120-1 (Version None)
Quarter: 2008Q4

REPORT INFORMATION
  Report Type: 
  Country: None (occurrence: None)
  Receive Date: 20081219
  Receipt Date: 20071217
  Transmission Date: 20090506
  Serious: No
  Sender: FDA-Public Use
  Company Number: A0699820A

PATIENT

DRUGS (2)
  1. AVODART [Suspect]
     Indication: DRUG USE FOR UNKNOWN INDICATION
     Route: 048
  2. FLOMAX [Suspect]
     Indication: DRUG USE FOR UNKNOWN INDICATION
     Route: 048

REACTIONS (2)
  - FEELING ABNORMAL [None]
  - TENDERNESS [None]
